FAERS Safety Report 14774224 (Version 2)
Quarter: 2018Q2

REPORT INFORMATION
  Report Type: Report from Study
  Country: CA (occurrence: CA)
  Receive Date: 20180418
  Receipt Date: 20180528
  Transmission Date: 20180711
  Serious: Yes (Other)
  Sender: FDA-Public Use
  Company Number: CA-GLAXOSMITHKLINE-CA2018GSK065602

PATIENT
  Age: 58 Year
  Sex: Female

DRUGS (3)
  1. CORTISONE ACETATE. [Suspect]
     Active Substance: CORTISONE ACETATE
     Indication: PRODUCT USED FOR UNKNOWN INDICATION
     Dosage: UNK
  2. SALBUTAMOL SULPHATE [Suspect]
     Active Substance: ALBUTEROL SULFATE
     Indication: PRODUCT USED FOR UNKNOWN INDICATION
     Dosage: UNK
  3. SEREVENT DISKUS [Suspect]
     Active Substance: SALMETEROL XINAFOATE
     Indication: PRODUCT USED FOR UNKNOWN INDICATION
     Dosage: UNK

REACTIONS (14)
  - Palpitations [Unknown]
  - Myalgia [Unknown]
  - Type 2 diabetes mellitus [Unknown]
  - Gastroenteritis viral [Unknown]
  - Weight increased [Unknown]
  - Urinary tract infection [Unknown]
  - Drug ineffective [Unknown]
  - Coma [Unknown]
  - Insomnia [Unknown]
  - Nausea [Unknown]
  - Asthma [Unknown]
  - Hyperhidrosis [Unknown]
  - Blood count abnormal [Unknown]
  - Diarrhoea [Unknown]

NARRATIVE: CASE EVENT DATE: 20180208
